FAERS Safety Report 22294505 (Version 1)
Quarter: 2023Q2

REPORT INFORMATION
  Report Type: Spontaneous
  Country: US (occurrence: US)
  Receive Date: 20230508
  Receipt Date: 20230508
  Transmission Date: 20230722
  Serious: Yes (Other)
  Sender: FDA-Public Use
  Company Number: US-ASTELLAS-2022US041773

PATIENT
  Age: 81 Year
  Sex: Female

DRUGS (19)
  1. LEXISCAN [Suspect]
     Active Substance: REGADENOSON
     Indication: Scan myocardial perfusion
     Dosage: 0.4MG/5ML, OTHER (OVER 10 SECONDS X 1 DOSE)
     Route: 042
     Dates: start: 20221018, end: 20221018
  2. LEXISCAN [Suspect]
     Active Substance: REGADENOSON
     Indication: Scan myocardial perfusion
     Dosage: 0.4MG/5ML, OTHER (OVER 10 SECONDS X 1 DOSE)
     Route: 042
     Dates: start: 20221018, end: 20221018
  3. LEXISCAN [Suspect]
     Active Substance: REGADENOSON
     Indication: Scan myocardial perfusion
     Dosage: 0.4MG/5ML, OTHER (OVER 10 SECONDS X 1 DOSE)
     Route: 042
     Dates: start: 20221018, end: 20221018
  4. LEXISCAN [Suspect]
     Active Substance: REGADENOSON
     Indication: Scan myocardial perfusion
     Dosage: 0.4MG/5ML, OTHER (OVER 10 SECONDS X 1 DOSE)
     Route: 042
     Dates: start: 20221018, end: 20221018
  5. LEXISCAN [Suspect]
     Active Substance: REGADENOSON
     Indication: Chest pain
     Dosage: 0.4MG/5ML, OTHER (OVER 10 SECONDS X 1 DOSE)
     Route: 042
     Dates: start: 20221024, end: 20221024
  6. LEXISCAN [Suspect]
     Active Substance: REGADENOSON
     Indication: Chest pain
     Dosage: 0.4MG/5ML, OTHER (OVER 10 SECONDS X 1 DOSE)
     Route: 042
     Dates: start: 20221024, end: 20221024
  7. LEXISCAN [Suspect]
     Active Substance: REGADENOSON
     Indication: Chest pain
     Dosage: 0.4MG/5ML, OTHER (OVER 10 SECONDS X 1 DOSE)
     Route: 042
     Dates: start: 20221024, end: 20221024
  8. LEXISCAN [Suspect]
     Active Substance: REGADENOSON
     Indication: Chest pain
     Dosage: 0.4MG/5ML, OTHER (OVER 10 SECONDS X 1 DOSE)
     Route: 042
     Dates: start: 20221024, end: 20221024
  9. LEXISCAN [Suspect]
     Active Substance: REGADENOSON
     Dosage: 0.4 MG, ONE DOSE (OVER 10 SECONDS)
     Route: 042
     Dates: start: 20221108, end: 20221108
  10. LEXISCAN [Suspect]
     Active Substance: REGADENOSON
     Dosage: 0.4 MG, ONE DOSE (OVER 10 SECONDS)
     Route: 042
     Dates: start: 20221108, end: 20221108
  11. LEXISCAN [Suspect]
     Active Substance: REGADENOSON
     Dosage: 0.4 MG, ONE DOSE (OVER 10 SECONDS)
     Route: 042
     Dates: start: 20221108, end: 20221108
  12. LEXISCAN [Suspect]
     Active Substance: REGADENOSON
     Dosage: 0.4 MG, ONE DOSE (OVER 10 SECONDS)
     Route: 042
     Dates: start: 20221108, end: 20221108
  13. ATORVASTATIN [Concomitant]
     Active Substance: ATORVASTATIN
     Indication: Product used for unknown indication
     Route: 065
  14. CHOLECALCIFEROL [Concomitant]
     Active Substance: CHOLECALCIFEROL
     Indication: Product used for unknown indication
     Dosage: 1000 UNITS ONCE DAILY
     Route: 065
  15. HYDRALAZINE [Concomitant]
     Active Substance: HYDRALAZINE HYDROCHLORIDE
     Indication: Product used for unknown indication
     Route: 065
  16. METOPROLOL [Concomitant]
     Active Substance: METOPROLOL
     Indication: Product used for unknown indication
     Route: 065
  17. VITAMINS [Concomitant]
     Active Substance: VITAMINS
     Indication: Product used for unknown indication
     Dosage: UNK UNK, ONCE DAILY
     Route: 065
  18. PROTONIX [Concomitant]
     Active Substance: PANTOPRAZOLE SODIUM
     Indication: Product used for unknown indication
     Route: 065
  19. TYLENOL [Concomitant]
     Active Substance: ACETAMINOPHEN
     Indication: Product used for unknown indication
     Dosage: 325 MG, AS NEEDED PRN
     Route: 065

REACTIONS (3)
  - Hypotension [Recovered/Resolved]
  - Hypotension [Recovered/Resolved]
  - Hypotension [Recovered/Resolved]

NARRATIVE: CASE EVENT DATE: 20221018
